FAERS Safety Report 4502433-1 (Version None)
Quarter: 2004Q4

REPORT INFORMATION
  Report Type: 
  Country: None (occurrence: None)
  Receive Date: 20041110
  Receipt Date: 20041029
  Transmission Date: 20050328
  Serious: No
  Sender: FDA-Public Use
  Company Number: 105779

PATIENT
  Age: 57 Year
  Sex: Female

DRUGS (7)
  1. HERCEPTIN [Suspect]
     Indication: BREAST CANCER
     Dosage: 147 MG, 1/WEEK, INTRAVENOUS
     Route: 042
     Dates: start: 20020716, end: 20021031
  2. DOCETAXEL (DOCETAXEL) [Suspect]
     Dosage: 130 MG, Q3W, INTRAVENOUS
     Route: 042
     Dates: start: 20020717, end: 20021031
  3. CARBOPLATIN [Suspect]
     Dosage: 590 MG, Q3W, INTRAVENOUS
     Route: 042
     Dates: start: 20020717, end: 20021031
  4. DEXAMETHASONE [Concomitant]
  5. ZOFRAN [Concomitant]
  6. TRIMETHOPRIM [Concomitant]
  7. G-CSF (FILGRASTIM) [Concomitant]

REACTIONS (1)
  - DEHYDRATION [None]
